FAERS Safety Report 24061729 (Version 1)
Quarter: 2024Q3

REPORT INFORMATION
  Report Type: Spontaneous
  Country: IN (occurrence: IN)
  Receive Date: 20240708
  Receipt Date: 20240708
  Transmission Date: 20241017
  Serious: Yes (Other)
  Sender: PFIZER
  Company Number: IN-PFIZER INC-202400207274

PATIENT
  Sex: Male

DRUGS (8)
  1. CARBOPLATIN [Suspect]
     Active Substance: CARBOPLATIN
     Dosage: FIRST CYCLE
     Dates: start: 2023
  2. CARBOPLATIN [Suspect]
     Active Substance: CARBOPLATIN
     Dosage: SECOND CYCLE
     Dates: start: 2023
  3. CARBOPLATIN [Suspect]
     Active Substance: CARBOPLATIN
     Dosage: THIRD CYCLE
     Dates: start: 20230905
  4. CARBOPLATIN [Suspect]
     Active Substance: CARBOPLATIN
     Dosage: SIXTH CYCLE
     Dates: start: 20231118
  5. PEMETREXED [Suspect]
     Active Substance: PEMETREXED
     Dosage: FIRST CYCLE
     Dates: start: 2023
  6. PEMETREXED [Suspect]
     Active Substance: PEMETREXED
     Dosage: SECOND CYCLE
     Dates: start: 2023
  7. PEMETREXED [Suspect]
     Active Substance: PEMETREXED
     Dosage: THIRD CYCLE
     Dates: start: 20230905
  8. PEMETREXED [Suspect]
     Active Substance: PEMETREXED
     Dosage: SIXTH CYCLE
     Dates: start: 20231118

REACTIONS (3)
  - Febrile neutropenia [Unknown]
  - Septic shock [Unknown]
  - Neoplasm progression [Unknown]

NARRATIVE: CASE EVENT DATE: 20230101
